FAERS Safety Report 15500663 (Version 1)
Quarter: 2018Q4

REPORT INFORMATION
  Report Type: Spontaneous
  Country: US (occurrence: US)
  Receive Date: 20181015
  Receipt Date: 20181015
  Transmission Date: 20190205
  Serious: Yes (Hospitalization)
  Sender: FDA-Public Use
  Company Number: None

PATIENT
  Age: 60 Year
  Sex: Male

DRUGS (20)
  1. FLUTICASONE. [Concomitant]
     Active Substance: FLUTICASONE
  2. MONTELUKAST [Concomitant]
     Active Substance: MONTELUKAST SODIUM
  3. METFORMIN [Concomitant]
     Active Substance: METFORMIN HYDROCHLORIDE
  4. HUMIRA [Suspect]
     Active Substance: ADALIMUMAB
     Indication: RHEUMATOID ARTHRITIS
     Dosage: ?          OTHER FREQUENCY:QOW;?
     Route: 058
     Dates: start: 20180322
  5. RANITIDINE. [Concomitant]
     Active Substance: RANITIDINE
  6. SYMBICORT [Concomitant]
     Active Substance: BUDESONIDE\FORMOTEROL FUMARATE DIHYDRATE
  7. ALLOPURINOL. [Concomitant]
     Active Substance: ALLOPURINOL
  8. VIRTUSSIN AC [Concomitant]
     Active Substance: CODEINE PHOSPHATE\GUAIFENESIN
  9. PROAIR HFA [Concomitant]
     Active Substance: ALBUTEROL SULFATE
  10. LEVOFLOXACIN. [Concomitant]
     Active Substance: LEVOFLOXACIN
  11. NYSTATIN. [Concomitant]
     Active Substance: NYSTATIN
  12. IPRATROPIUM [Concomitant]
     Active Substance: IPRATROPIUM
  13. VIOS [Concomitant]
  14. CHOLESTYRAM [Concomitant]
     Active Substance: CHOLESTYRAMINE
  15. BROM/PSE/DM [Concomitant]
  16. FENOFIBRATE. [Concomitant]
     Active Substance: FENOFIBRATE
  17. AMLODIPINE [Concomitant]
     Active Substance: AMLODIPINE BESYLATE
  18. PREDNISONE. [Concomitant]
     Active Substance: PREDNISONE
  19. LEFLUNOMIDE. [Concomitant]
     Active Substance: LEFLUNOMIDE
  20. CEFDINIR. [Concomitant]
     Active Substance: CEFDINIR

REACTIONS (1)
  - Lung infection [None]

NARRATIVE: CASE EVENT DATE: 20180927
